FAERS Safety Report 14834498 (Version 1)
Quarter: 2018Q2

REPORT INFORMATION
  Report Type: Spontaneous
  Country: US (occurrence: US)
  Receive Date: 20180501
  Receipt Date: 20180501
  Transmission Date: 20180711
  Serious: No
  Sender: FDA-Public Use
  Company Number: US-B.I. PHARMACEUTICALS,INC./RIDGEFIELD-2018-BI-022926

PATIENT
  Age: 90 Year
  Sex: Female

DRUGS (4)
  1. METHTHYLDOPA [Concomitant]
     Indication: HYPERTENSION
     Dosage: ONE CAPLET QID;  FORM STRENGTH: 250MG; FORMULATION: CAPLET
     Route: 048
  2. HYDROCHLOROTHIAZIDE. [Concomitant]
     Active Substance: HYDROCHLOROTHIAZIDE
     Indication: DIURETIC THERAPY
     Dosage: ONE CAPLET DAILY;  FORM STRENGTH: 12.6MG; FORMULATION: CAPLET
     Route: 048
  3. CLONIDINE. [Concomitant]
     Active Substance: CLONIDINE
     Indication: HYPERTENSION
     Dosage: ONE CAPLET IN THE MORNING AND 2 CAPLETS IN THE EVENING;  FORM STRENGTH: 0.1MG; FORMULATION: CAPLET
     Route: 048
  4. PRADAXA [Suspect]
     Active Substance: DABIGATRAN ETEXILATE MESYLATE
     Indication: ATRIAL FIBRILLATION
     Route: 048
     Dates: start: 20180315

REACTIONS (2)
  - Somnolence [Unknown]
  - Dyspepsia [Unknown]

NARRATIVE: CASE EVENT DATE: 20180405
